FAERS Safety Report 6283709-7 (Version None)
Quarter: 2009Q3

REPORT INFORMATION
  Report Type: 
  Country: None (occurrence: None)
  Receive Date: 20090724
  Receipt Date: 20090720
  Transmission Date: 20100115
  Serious: Yes (Death)
  Sender: FDA-Public Use
  Company Number: GB-BAXTER-2009BH011771

PATIENT
  Age: 4 Month
  Sex: Male

DRUGS (1)
  1. SODIUM CHLORIDE 0.9% IN PLASTIC CONTAINER [Suspect]
     Indication: DRUG USE FOR UNKNOWN INDICATION
     Route: 042
     Dates: start: 20090704

REACTIONS (3)
  - DEATH [None]
  - DEHYDRATION [None]
  - OVERDOSE [None]
